FAERS Safety Report 5484766-8 (Version None)
Quarter: 2007Q4

REPORT INFORMATION
  Report Type: 
  Country: None (occurrence: None)
  Receive Date: 20071012
  Receipt Date: 20071002
  Transmission Date: 20080405
  Serious: Yes (Life-Threatening, Hospitalization)
  Sender: FDA-Public Use
  Company Number: SG-PFIZER INC-2007070885

PATIENT
  Sex: Male
  Weight: 57 kg

DRUGS (2)
  1. SUTENT [Suspect]
     Indication: METASTATIC RENAL CELL CARCINOMA
     Route: 048
  2. EPREX [Concomitant]
     Route: 058
     Dates: start: 20061223, end: 20070809

REACTIONS (8)
  - ASTHENIA [None]
  - HYPOTENSION [None]
  - NEUTROPENIA [None]
  - PYREXIA [None]
  - RENAL IMPAIRMENT [None]
  - SEPSIS [None]
  - THROMBOCYTOPENIA [None]
  - VOMITING [None]
